FAERS Safety Report 14505292 (Version 1)
Quarter: 2018Q1

REPORT INFORMATION
  Report Type: Spontaneous
  Country: US (occurrence: US)
  Receive Date: 20180208
  Receipt Date: 20180208
  Transmission Date: 20180509
  Serious: Yes (Other)
  Sender: FDA-Public Use
  Company Number: US-PFIZER INC-2018051911

PATIENT
  Age: 53 Year
  Sex: Female

DRUGS (5)
  1. ESTRIOL [Concomitant]
     Active Substance: ESTRIOL
     Indication: MENOPAUSAL SYMPTOMS
     Dosage: UNK (UNKNOWN DOSAGES)
  2. ESTRIOL [Concomitant]
     Active Substance: ESTRIOL
     Indication: VULVOVAGINAL DRYNESS
     Dosage: UNK (DECREASING HER DOSE OF ESTRIOL GRADUALLY)
  3. ESTRADIOL. [Suspect]
     Active Substance: ESTRADIOL
     Indication: MENOPAUSAL SYMPTOMS
     Dosage: UNK (UNKNOWN DOSAGES)
  4. ESTRADIOL. [Suspect]
     Active Substance: ESTRADIOL
     Indication: VULVOVAGINAL DRYNESS
  5. ESTRIOL [Concomitant]
     Active Substance: ESTRIOL
     Dosage: UNK (FOUR TIMES HER NORMAL DOSE)

REACTIONS (1)
  - Hallucination, auditory [Recovered/Resolved]
